FAERS Safety Report 4830759-0 (Version None)
Quarter: 2005Q4

REPORT INFORMATION
  Report Type: 
  Country: None (occurrence: None)
  Receive Date: 20051117
  Receipt Date: 20050930
  Transmission Date: 20060501
  Serious: Yes (Other)
  Sender: FDA-Public Use
  Company Number: US-MERCK-0510USA01923

PATIENT
  Age: 53 Year
  Sex: Female
  Weight: 100 kg

DRUGS (29)
  1. VIOXX [Suspect]
     Indication: ARTHRALGIA
     Route: 048
     Dates: start: 20010808, end: 20030328
  2. VIOXX [Suspect]
     Indication: ARTHRITIS
     Route: 048
     Dates: start: 20010808, end: 20030328
  3. ACTOS [Concomitant]
     Route: 065
  4. AGGRENOX [Concomitant]
     Route: 065
  5. ALLEGRA [Concomitant]
     Route: 065
  6. ALTACE [Concomitant]
     Route: 065
  7. AMBIEN [Concomitant]
     Route: 065
  8. AMITRIPTYLINE HYDROCHLORIDE [Concomitant]
     Route: 065
  9. ASTELIN [Concomitant]
     Route: 065
  10. AVANDIA [Concomitant]
     Route: 065
  11. BENZONATATE [Concomitant]
     Route: 065
  12. CLONAZEPAM [Concomitant]
     Route: 065
  13. CYCLOBENZAPRINE(WEST POINT PHARMA) [Concomitant]
     Route: 065
  14. DIOVAN [Concomitant]
     Route: 065
  15. GLIPIZIDE [Concomitant]
     Route: 065
  16. GLUCOPHAGE XR [Concomitant]
     Route: 065
  17. GUAIFENESIN [Concomitant]
     Route: 065
  18. LIPITOR [Concomitant]
     Route: 065
  19. METOCLOPRAMIDE [Concomitant]
     Route: 065
  20. NITROGLYCERIN [Concomitant]
     Route: 065
  21. NORTRIPTYLINE [Concomitant]
     Route: 065
  22. NYSTATIN USP (PADDOCK) [Concomitant]
     Route: 065
  23. PLAVIX [Concomitant]
     Route: 065
  24. PREVACID [Concomitant]
     Route: 065
  25. RHINOCORT [Concomitant]
     Route: 065
  26. SKELAXIN [Concomitant]
     Route: 065
  27. WELLBUTRIN SR [Concomitant]
     Route: 065
  28. ZITHROMAX [Concomitant]
     Route: 065
  29. ISOSORBIDE [Concomitant]
     Route: 065

REACTIONS (1)
  - CEREBROVASCULAR ACCIDENT [None]
